FAERS Safety Report 23059722 (Version 6)
Quarter: 2024Q1

REPORT INFORMATION
  Report Type: Report from Study
  Country: FR (occurrence: FR)
  Receive Date: 20231012
  Receipt Date: 20240130
  Transmission Date: 20240410
  Serious: Yes (Death, Life-Threatening, Hospitalization, Other)
  Sender: FDA-Public Use
  Company Number: FR-BAXTER-2023BAX031762

PATIENT
  Age: 79 Year
  Sex: Male
  Weight: 80 kg

DRUGS (23)
  1. DOXORUBICIN HYDROCHLORIDE [Suspect]
     Active Substance: DOXORUBICIN HYDROCHLORIDE
     Indication: Diffuse large B-cell lymphoma
     Dosage: 98 MG, EVERY 3 WEEKS
     Route: 042
     Dates: start: 20230817, end: 20230817
  2. DOXORUBICIN HYDROCHLORIDE [Suspect]
     Active Substance: DOXORUBICIN HYDROCHLORIDE
     Dosage: 97 MG, EVERY 3 WEEKS
     Route: 042
     Dates: start: 20230907, end: 20230907
  3. VINCRISTINE SULFATE [Suspect]
     Active Substance: VINCRISTINE SULFATE
     Indication: Diffuse large B-cell lymphoma
     Dosage: 2 MG, EVERY 3 WEEKS
     Route: 042
     Dates: start: 20230817, end: 20230907
  4. RITUXIMAB [Suspect]
     Active Substance: RITUXIMAB
     Indication: Diffuse large B-cell lymphoma
     Dosage: 740 MG, EVERY 3 WEEKS
     Route: 042
     Dates: start: 20230817, end: 20230817
  5. RITUXIMAB [Suspect]
     Active Substance: RITUXIMAB
     Dosage: 720 MG, EVERY 3 WEEKS
     Route: 042
     Dates: start: 20230907, end: 20230907
  6. PREDNISONE [Suspect]
     Active Substance: PREDNISONE
     Indication: Diffuse large B-cell lymphoma
     Dosage: C1-6, DAY 1-5, EVERY 1 DAYS
     Route: 048
     Dates: start: 20230818, end: 20230911
  7. EPCORITAMAB [Suspect]
     Active Substance: EPCORITAMAB
     Indication: Diffuse large B-cell lymphoma
     Dosage: PRIMING DOSE, C1-D1
     Route: 058
     Dates: start: 20230817, end: 20230817
  8. EPCORITAMAB [Suspect]
     Active Substance: EPCORITAMAB
     Dosage: INTERMEDIATE DOSE; C1, D8
     Route: 058
     Dates: start: 20230824, end: 20230824
  9. EPCORITAMAB [Suspect]
     Active Substance: EPCORITAMAB
     Dosage: 48 MG, FULL DOSE; C1, D15
     Route: 058
     Dates: start: 20230831, end: 20230831
  10. EPCORITAMAB [Suspect]
     Active Substance: EPCORITAMAB
     Dosage: 48 MG C2, D1 AND 8, EVERY 1 WEEKS
     Route: 058
     Dates: start: 20230907, end: 20230914
  11. CYCLOPHOSPHAMIDE [Suspect]
     Active Substance: CYCLOPHOSPHAMIDE
     Indication: Diffuse large B-cell lymphoma
     Dosage: 1470 MG, EVERY 3 WEEKS
     Route: 042
     Dates: start: 20230817, end: 20230817
  12. CYCLOPHOSPHAMIDE [Suspect]
     Active Substance: CYCLOPHOSPHAMIDE
     Dosage: 1450 MG, EVERY 3 WEEKS
     Route: 042
     Dates: start: 20230907, end: 20230907
  13. FILGRASTIM [Concomitant]
     Active Substance: FILGRASTIM
     Indication: Antibiotic prophylaxis
     Dosage: 48 IU, WEEKLY
     Route: 065
     Dates: start: 20230817
  14. PRIMPERAN [Concomitant]
     Active Substance: METOCLOPRAMIDE HYDROCHLORIDE
     Indication: Prophylaxis of nausea and vomiting
     Dosage: 10 MG, AS NEEDED
     Route: 065
     Dates: start: 20230817
  15. VALACYCLOVIR HYDROCHLORIDE [Concomitant]
     Active Substance: VALACYCLOVIR HYDROCHLORIDE
     Indication: Antiviral prophylaxis
     Dosage: 500 MG, 2/DAYS
     Route: 065
     Dates: start: 20230817
  16. FUNGIZONE [Concomitant]
     Active Substance: AMPHOTERICIN B
     Indication: Infection prophylaxis
     Dosage: UNK, 3X/DAY
     Route: 065
     Dates: start: 2023
  17. BACTRIM [Concomitant]
     Active Substance: SULFAMETHOXAZOLE\TRIMETHOPRIM
     Indication: Antifungal prophylaxis
     Dosage: 3/WEEKS
     Route: 065
     Dates: start: 20230817
  18. ALLOPURINOL [Concomitant]
     Active Substance: ALLOPURINOL
     Indication: Hyperuricaemia
     Dosage: 100 MG, DAILY
     Route: 065
  19. TRAMADOL [Concomitant]
     Active Substance: TRAMADOL\TRAMADOL HYDROCHLORIDE
     Indication: Cancer pain
     Dosage: 75 MG, 2X/DAY
     Route: 065
  20. .ALPHA.-TOCOPHEROL ACETATE, D- [Concomitant]
     Active Substance: .ALPHA.-TOCOPHEROL ACETATE, D-
     Indication: Vitamin supplementation
     Dosage: 1000 MG, DAILY
     Route: 065
  21. SIMVASTATIN [Concomitant]
     Active Substance: SIMVASTATIN
     Indication: Dyslipidaemia
     Dosage: 20 MG, DAILY
     Route: 065
  22. ACETAMINOPHEN [Concomitant]
     Active Substance: ACETAMINOPHEN
     Indication: Pain prophylaxis
     Dosage: 650 MG, 2X/DAY
     Route: 065
  23. POLYETHYLENE GLYCOLS [Concomitant]
     Active Substance: POLYETHYLENE GLYCOLS
     Indication: Constipation
     Dosage: UNK, OCCASIONAL
     Route: 065
     Dates: start: 20230905

REACTIONS (3)
  - Septic shock [Fatal]
  - Septic shock [Not Recovered/Not Resolved]
  - Thrombocytopenia [Not Recovered/Not Resolved]

NARRATIVE: CASE EVENT DATE: 20230916
